FAERS Safety Report 17337717 (Version 1)
Quarter: 2020Q1

REPORT INFORMATION
  Report Type: Spontaneous
  Country: US (occurrence: US)
  Receive Date: 20200129
  Receipt Date: 20200129
  Transmission Date: 20200409
  Serious: Yes (Other)
  Sender: FDA-Public Use
  Company Number: US-CIPLA LTD.-2020US00560

PATIENT

DRUGS (13)
  1. WARFARIN [Interacting]
     Active Substance: WARFARIN
     Dosage: 30 MILLIGRAM, WEEKLY
     Route: 065
  2. LISINOPRIL. [Concomitant]
     Active Substance: LISINOPRIL
     Indication: PRODUCT USED FOR UNKNOWN INDICATION
     Dosage: 20 MG DAILY
     Route: 065
  3. WARFARIN [Interacting]
     Active Substance: WARFARIN
     Dosage: 32 MILLIGRAM, WEEKLY
     Route: 065
  4. WARFARIN [Interacting]
     Active Substance: WARFARIN
     Dosage: 46 MILLIGRAM, WEEKLY
     Route: 065
  5. WARFARIN [Interacting]
     Active Substance: WARFARIN
     Dosage: 40 MILLIGRAM, WEEKLY
     Route: 065
  6. WARFARIN [Interacting]
     Active Substance: WARFARIN
     Dosage: 38 MILLIGRAM, WEEKLY
     Route: 065
  7. WARFARIN [Suspect]
     Active Substance: WARFARIN
     Indication: DEEP VEIN THROMBOSIS
     Dosage: UNK
     Route: 065
  8. WARFARIN [Interacting]
     Active Substance: WARFARIN
     Dosage: 28 MILLIGRAM, WEEKLY
     Route: 065
  9. TADALAFIL. [Concomitant]
     Active Substance: TADALAFIL
     Indication: PRODUCT USED FOR UNKNOWN INDICATION
     Dosage: 5 MILLIGRAM, PRN, ONCE DAILY AS NEEDED
     Route: 065
  10. PHENYTOIN. [Concomitant]
     Active Substance: PHENYTOIN
     Indication: SEIZURE
     Dosage: 100 MILLIGRAM, TID
     Route: 048
  11. WARFARIN [Interacting]
     Active Substance: WARFARIN
     Dosage: 44 MILLIGRAM, WEEKLY
     Route: 065
  12. ALBUTEROL [SALBUTAMOL] [Concomitant]
     Active Substance: ALBUTEROL
     Indication: PRODUCT USED FOR UNKNOWN INDICATION
     Dosage: 1 PUFF EVERY 4 HOURS AS NEEDED
     Route: 065
  13. CYCLOBENZAPRINE. [Concomitant]
     Active Substance: CYCLOBENZAPRINE
     Indication: PRODUCT USED FOR UNKNOWN INDICATION
     Dosage: 10 MILLIGRAM, PRN, 2 TIMES DAILY AS NEEDED
     Route: 065

REACTIONS (3)
  - Anticoagulation drug level above therapeutic [Recovered/Resolved]
  - Tobacco interaction [Unknown]
  - Anticoagulation drug level below therapeutic [Recovered/Resolved]
